FAERS Safety Report 6643059-3 (Version None)
Quarter: 2010Q1

REPORT INFORMATION
  Report Type: 
  Country: None (occurrence: None)
  Receive Date: 20100319
  Receipt Date: 20100310
  Transmission Date: 20100710
  Serious: Yes (Hospitalization)
  Sender: FDA-Public Use
  Company Number: JP-ELI_LILLY_AND_COMPANY-JP201002001759

PATIENT
  Sex: Male
  Weight: 74.4 kg

DRUGS (11)
  1. ALIMTA [Suspect]
     Indication: LUNG ADENOCARCINOMA RECURRENT
     Dosage: 900 MG, OTHER
     Route: 042
     Dates: start: 20091127, end: 20100108
  2. PANVITAN [Concomitant]
     Dosage: 1 G, DAILY (1/D)
     Dates: start: 20091117, end: 20100209
  3. METHYCOBAL [Concomitant]
     Dosage: 1 MG, OTHER
     Route: 030
     Dates: start: 20091117
  4. AMLODIPINE [Concomitant]
     Indication: HYPERTENSION
     Dosage: 2.5 MG, DAILY (1/D)
     Route: 048
     Dates: start: 20040101
  5. DIOVAN [Concomitant]
     Indication: HYPERTENSION
     Dosage: 20 MG, 2/D
     Route: 048
     Dates: start: 20040101
  6. ASTOMIN [Concomitant]
     Indication: COUGH
     Dosage: 10 MG, 3/D
     Route: 048
     Dates: start: 20091110
  7. MUCODYNE [Concomitant]
     Indication: PRODUCTIVE COUGH
     Dosage: 500 MG, 3/D
     Dates: start: 20091124
  8. CEFDINIR [Concomitant]
     Indication: INFECTED EPIDERMAL CYST
     Dosage: 100 MG, 3/D
     Route: 048
     Dates: start: 20091125, end: 20091130
  9. ANTEBATE [Concomitant]
     Indication: ECZEMA NUMMULAR
     Dosage: 5 G, DAILY (1/D)
     Route: 062
     Dates: start: 20091125, end: 20090101
  10. PRIMPERAN                               /SCH/ [Concomitant]
     Indication: NAUSEA
     Dosage: 5 MG, AS NEEDED
     Route: 048
     Dates: start: 20091201
  11. BROCIN-CODEINE [Concomitant]
     Indication: COUGH
     Dosage: 2 ML, AS NEEDED
     Route: 048
     Dates: start: 20091201

REACTIONS (5)
  - ANAEMIA [None]
  - CANCER PAIN [None]
  - INTERSTITIAL LUNG DISEASE [None]
  - PLEURAL EFFUSION [None]
  - PYREXIA [None]
